FAERS Safety Report 5918449-4 (Version None)
Quarter: 2008Q4

REPORT INFORMATION
  Report Type: 
  Country: None (occurrence: None)
  Receive Date: 20081015
  Receipt Date: 20081009
  Transmission Date: 20090506
  Serious: Yes (Life-Threatening, Hospitalization)
  Sender: FDA-Public Use
  Company Number: JP-JNJFOC-20080601779

PATIENT
  Sex: Male
  Weight: 66 kg

DRUGS (82)
  1. FENTANYL [Suspect]
     Indication: PAIN
     Route: 062
     Dates: start: 20080603, end: 20080605
  2. FENTANYL [Suspect]
     Indication: CANCER PAIN
     Route: 062
     Dates: start: 20080603, end: 20080605
  3. FENTANYL [Suspect]
     Route: 062
  4. FENTANYL [Suspect]
     Route: 062
  5. NEUTROGIN [Concomitant]
     Indication: NEUTROPENIA
     Route: 058
  6. SOLDEM 3A [Concomitant]
     Route: 041
  7. SOLDEM 3A [Concomitant]
     Route: 041
  8. SOLDEM 3A [Concomitant]
     Route: 041
  9. SOLDEM 3A [Concomitant]
     Route: 041
  10. SOLDEM 3A [Concomitant]
     Indication: VOMITING
     Route: 041
  11. SOLDEM 3A [Concomitant]
     Indication: MINERAL SUPPLEMENTATION
     Route: 041
  12. NOVAMIN [Concomitant]
     Route: 048
  13. NOVAMIN [Concomitant]
     Route: 048
  14. NOVAMIN [Concomitant]
     Route: 048
  15. NOVAMIN [Concomitant]
     Indication: VOMITING
     Route: 048
  16. PRIMPERAN [Concomitant]
     Route: 048
  17. PRIMPERAN [Concomitant]
     Route: 048
  18. PRIMPERAN [Concomitant]
     Route: 048
  19. PRIMPERAN [Concomitant]
     Indication: VOMITING
     Route: 048
  20. GASTER D [Concomitant]
     Route: 048
  21. GASTER D [Concomitant]
     Route: 048
  22. GASTER D [Concomitant]
     Indication: GASTRITIS PROPHYLAXIS
     Route: 048
  23. SELBEX [Concomitant]
     Route: 048
  24. SELBEX [Concomitant]
     Route: 048
  25. SELBEX [Concomitant]
     Indication: GASTRITIS PROPHYLAXIS
     Route: 048
  26. ZYLORIC [Concomitant]
     Route: 048
  27. ZYLORIC [Concomitant]
     Route: 048
  28. ZYLORIC [Concomitant]
     Indication: HYPERURICAEMIA
     Route: 048
  29. LENDORMIN [Concomitant]
     Indication: INSOMNIA
     Route: 048
  30. MUCODYNE [Concomitant]
     Route: 048
  31. MUCODYNE [Concomitant]
     Route: 048
  32. MUCODYNE [Concomitant]
     Indication: PRODUCTIVE COUGH
     Route: 048
  33. DASEN [Concomitant]
     Route: 048
  34. DASEN [Concomitant]
     Route: 048
  35. DASEN [Concomitant]
     Indication: PRODUCTIVE COUGH
     Route: 048
  36. LOXOPROFEN [Concomitant]
     Route: 048
  37. LOXOPROFEN [Concomitant]
     Route: 048
  38. LOXOPROFEN [Concomitant]
     Indication: CANCER PAIN
     Route: 048
  39. MAGLAX [Concomitant]
     Route: 048
  40. MAGLAX [Concomitant]
     Indication: CONSTIPATION
     Route: 048
  41. DOPAMINE HCL [Concomitant]
     Indication: BLOOD PRESSURE DECREASED
     Route: 041
  42. ALEVIATIN [Concomitant]
     Route: 042
  43. ALEVIATIN [Concomitant]
     Indication: CONVULSION
     Route: 042
  44. ALINAMIN-F [Concomitant]
     Indication: VITAMIN SUPPLEMENTATION
     Route: 048
  45. NASEA [Concomitant]
     Route: 042
  46. HYCAMTIN [Concomitant]
     Route: 042
  47. DEXART [Concomitant]
     Route: 042
  48. DEXART [Concomitant]
     Route: 042
  49. CALSED [Concomitant]
     Route: 042
  50. LAXOBERON [Concomitant]
     Indication: CONSTIPATION
     Route: 048
  51. PEMIROC [Concomitant]
     Route: 042
  52. PEMIROC [Concomitant]
     Route: 042
  53. HUMULIN R [Concomitant]
     Dosage: 16 LU
     Route: 042
  54. MODACIN [Concomitant]
     Route: 042
  55. CARBENIN [Concomitant]
     Indication: INFECTION PROPHYLAXIS
     Route: 042
  56. CLIDAMACIN [Concomitant]
     Route: 042
  57. RECOGNAN [Concomitant]
     Indication: MINERAL SUPPLEMENTATION
     Route: 042
  58. PREDOPA [Concomitant]
     Route: 042
  59. PREDOPA [Concomitant]
     Route: 042
  60. PREDOPA [Concomitant]
     Indication: MINERAL SUPPLEMENTATION
     Route: 042
  61. SOLULACT [Concomitant]
     Route: 042
  62. SOLULACT [Concomitant]
     Indication: MINERAL SUPPLEMENTATION
     Route: 042
  63. ATARAX [Concomitant]
     Route: 042
  64. SERENACE [Concomitant]
     Route: 042
  65. HYPOALCOHOL [Concomitant]
  66. MASKIN [Concomitant]
  67. MASKIN [Concomitant]
     Indication: INFECTION PROPHYLAXIS
  68. XYLOCAINE [Concomitant]
  69. DESYREL [Concomitant]
     Route: 048
  70. DESYREL [Concomitant]
     Route: 048
  71. NOVORAPID 300 FLEXPEN [Concomitant]
     Indication: TYPE 2 DIABETES MELLITUS
     Route: 058
  72. SENNOSIDE [Concomitant]
     Route: 048
  73. SENNOSIDE [Concomitant]
     Indication: CONSTIPATION
     Route: 048
  74. MIDAZOLAM [Concomitant]
     Dosage: 0.2-1.5 MG/H
     Route: 042
  75. MIDAZOLAM [Concomitant]
     Dosage: 0.2-1.5 MG/H
     Route: 042
  76. POVIDONE IODINE [Concomitant]
  77. OXYGEN [Concomitant]
     Indication: MINERAL SUPPLEMENTATION
  78. ISOTONIC SODIUM CHLORIDE SOLUTION [Concomitant]
     Route: 042
  79. ISOTONIC SODIUM CHLORIDE SOLUTION [Concomitant]
     Route: 042
  80. ISOTONIC SODIUM CHLORIDE SOLUTION [Concomitant]
     Route: 042
  81. ISOTONIC SODIUM CHLORIDE SOLUTION [Concomitant]
     Route: 042
  82. ISOTONIC SODIUM CHLORIDE SOLUTION [Concomitant]
     Route: 042

REACTIONS (1)
  - ASPIRATION [None]
